FAERS Safety Report 21464421 (Version 1)
Quarter: 2022Q4

REPORT INFORMATION
  Report Type: Spontaneous
  Country: US (occurrence: US)
  Receive Date: 20221017
  Receipt Date: 20221017
  Transmission Date: 20230112
  Serious: Yes (Other)
  Sender: FDA-Public Use
  Company Number: US-CELLTRION INC.-2022US016677

PATIENT

DRUGS (2)
  1. TRUXIMA [Suspect]
     Active Substance: RITUXIMAB-ABBS
     Indication: Scleritis
     Dosage: 1000 MILLIGRAM, 1/WEEK
     Dates: start: 20220826
  2. TRUXIMA [Suspect]
     Active Substance: RITUXIMAB-ABBS
     Dosage: 1000 MILLIGRAM, 1/WEEK
     Dates: start: 20220904

REACTIONS (2)
  - Scleritis [Unknown]
  - Off label use [Unknown]
